FAERS Safety Report 24689622 (Version 1)
Quarter: 2024Q4

REPORT INFORMATION
  Report Type: Spontaneous
  Country: PL (occurrence: PL)
  Receive Date: 20241203
  Receipt Date: 20241203
  Transmission Date: 20250115
  Serious: Yes (Other)
  Sender: RANBAXY
  Company Number: PL-SUN PHARMACEUTICAL INDUSTRIES LTD-2024RR-481718

PATIENT
  Age: 64 Year
  Sex: Male
  Weight: 57 kg

DRUGS (1)
  1. GEMCITABINE [Suspect]
     Active Substance: GEMCITABINE
     Indication: Product used for unknown indication
     Dosage: 1650 MILLIGRAM
     Route: 040
     Dates: start: 20230601, end: 20230601

REACTIONS (1)
  - Anaemia [Unknown]
